FAERS Safety Report 11057403 (Version 4)
Quarter: 2016Q1

REPORT INFORMATION
  Report Type: Spontaneous
  Country: US (occurrence: US)
  Receive Date: 20150422
  Receipt Date: 20160223
  Transmission Date: 20160525
  Serious: Yes (Hospitalization, Other)
  Sender: FDA-Public Use
  Company Number: US-BAYER-2015-137757

PATIENT
  Age: 30 Year
  Sex: Female
  Weight: 65.76 kg

DRUGS (11)
  1. FLUOCINONIDE. [Concomitant]
     Active Substance: FLUOCINONIDE
     Dosage: 0.05 %, TID
     Dates: start: 20130103
  2. CLOTRIMAZOLE. [Concomitant]
     Active Substance: CLOTRIMAZOLE
     Dosage: 10 MG, 5 TIMES DAILY AS DIRECTED
     Dates: start: 20130103
  3. MELOXICAM. [Concomitant]
     Active Substance: MELOXICAM
     Dosage: 7.5 MG, BID, WITH FOOD
     Dates: start: 20130103
  4. MIRENA [Suspect]
     Active Substance: LEVONORGESTREL
     Indication: CONTRACEPTION
     Dosage: 20 MCG/24HR, CONT
     Route: 015
     Dates: start: 20100316, end: 20130205
  5. IBUPROFEN. [Concomitant]
     Active Substance: IBUPROFEN
     Dosage: 800 MG, TID
     Dates: start: 20130103
  6. FIBER [Concomitant]
     Active Substance: PSYLLIUM HUSK
     Dosage: 3 CAPSULES TWICE DAILY
     Dates: start: 20130103
  7. PROAIR HFA [Concomitant]
     Active Substance: ALBUTEROL SULFATE
     Dosage: 2 PUFF(S), EVERY 6 HOURS
     Dates: start: 20130103
  8. FLUCONAZOLE. [Concomitant]
     Active Substance: FLUCONAZOLE
     Dosage: 150 MG, 1 TABLET ONLY
     Dates: start: 20130103
  9. ERGOTAMINE/CAFEINE [Concomitant]
     Dosage: 2 TABLETS AT ONSET OF HEADACHE
     Dates: start: 20130103
  10. ACYCLOVIR ALPHARMA [ACICLOVIR SODIUM] [Concomitant]
     Dosage: 400 MG, 5 TIMES DAILY FOR 7 DAYS
     Dates: start: 20130103
  11. BUPRENORPHINE HYDROCHLORIDE. [Concomitant]
     Active Substance: BUPRENORPHINE HYDROCHLORIDE
     Dosage: 8 MG, AS DIRECTED
     Dates: start: 20130103

REACTIONS (15)
  - Abdominal pain lower [None]
  - Genital haemorrhage [None]
  - Pregnancy with contraceptive device [None]
  - Drug ineffective [None]
  - Device issue [None]
  - Vaginal haemorrhage [None]
  - Anxiety [None]
  - Stress [None]
  - Uterine perforation [None]
  - Injury [None]
  - General physical health deterioration [None]
  - Depression [None]
  - Abortion spontaneous [None]
  - Pelvic inflammatory disease [None]
  - Anhedonia [None]

NARRATIVE: CASE EVENT DATE: 2012
